FAERS Safety Report 7701251-0 (Version None)
Quarter: 2011Q3

REPORT INFORMATION
  Report Type: 
  Country: None (occurrence: None)
  Receive Date: 20110822
  Receipt Date: 20110805
  Transmission Date: 20111222
  Serious: Yes (Hospitalization)
  Sender: FDA-Public Use
  Company Number: US-GLAXOSMITHKLINE-A0941743A

PATIENT
  Age: 76 Year
  Sex: Male
  Weight: 100.9 kg

DRUGS (4)
  1. NOVOLOG [Concomitant]
  2. LISINOPRIL [Concomitant]
  3. AVANDIA [Suspect]
     Indication: TYPE 2 DIABETES MELLITUS
     Dosage: 4MG PER DAY
     Route: 048
     Dates: start: 20040101
  4. COREG [Concomitant]

REACTIONS (4)
  - MYOCARDIAL INFARCTION [None]
  - MITRAL VALVE INCOMPETENCE [None]
  - CARDIAC DISORDER [None]
  - VASCULAR GRAFT OCCLUSION [None]
